FAERS Safety Report 7054362-X (Version None)
Quarter: 2010Q4

REPORT INFORMATION
  Report Type: 
  Country: None (occurrence: None)
  Receive Date: 20101020
  Receipt Date: 20100831
  Transmission Date: 20110411
  Serious: No
  Sender: FDA-Public Use
  Company Number: US-BAYER-201020844BCC

PATIENT
  Age: 57 Year
  Sex: Male
  Weight: 109 kg

DRUGS (10)
  1. ALEVE (CAPLET) [Suspect]
     Indication: ARTHRALGIA
     Dosage: UNIT DOSE: 220 MG
     Route: 048
     Dates: start: 20100730
  2. ASPIRIN [Concomitant]
  3. CYMBALTA [Concomitant]
  4. HYDROCHLORZIDE [Concomitant]
  5. TRICOR [Concomitant]
  6. CALCIUM [Concomitant]
  7. ZOLPIDEM TARTRATE [Concomitant]
  8. TOPROL-XL [Concomitant]
  9. LAMOTRIGINE [Concomitant]
  10. DILTIAZEM [Concomitant]

REACTIONS (1)
  - ARTHRALGIA [None]
